FAERS Safety Report 16010073 (Version 1)
Quarter: 2019Q1

REPORT INFORMATION
  Report Type: Spontaneous
  Country: GB (occurrence: GB)
  Receive Date: 20190227
  Receipt Date: 20190227
  Transmission Date: 20190418
  Serious: Yes (Other)
  Sender: FDA-Public Use
  Company Number: GB-ROCHE-2273163

PATIENT
  Age: 52 Year
  Sex: Male

DRUGS (1)
  1. OBINUTUZUMAB. [Suspect]
     Active Substance: OBINUTUZUMAB
     Indication: PRODUCT USED FOR UNKNOWN INDICATION
     Dosage: 8.5ML PER HOUR.
     Route: 051
     Dates: start: 20181109

REACTIONS (4)
  - Dyspnoea [Unknown]
  - Erythema [Unknown]
  - Chest discomfort [Unknown]
  - Speech disorder [Unknown]

NARRATIVE: CASE EVENT DATE: 20181109
